FAERS Safety Report 8269576-0 (Version None)
Quarter: 2012Q2

REPORT INFORMATION
  Report Type: 
  Country: None (occurrence: None)
  Receive Date: 20120409
  Receipt Date: 20120318
  Transmission Date: 20120825
  Serious: Yes (Hospitalization)
  Sender: FDA-Public Use
  Company Number: IE-BAXTER-2012BAX000141

PATIENT
  Sex: Male
  Weight: 70 kg

DRUGS (3)
  1. CEFTRIAXONE [Suspect]
     Route: 042
     Dates: start: 20120316
  2. ACYCLOVIR [Suspect]
     Route: 042
     Dates: start: 20120316
  3. SODIUM CHLORIDE 0.9% INTRAVENOUS INFUSION BP [Suspect]
     Route: 042
     Dates: start: 20120316

REACTIONS (2)
  - INJECTION SITE EXTRAVASATION [None]
  - INJECTION SITE ERYTHEMA [None]
